FAERS Safety Report 14300891 (Version 1)
Quarter: 2017Q4

REPORT INFORMATION
  Report Type: Spontaneous
  Country: HR (occurrence: HR)
  Receive Date: 20171219
  Receipt Date: 20171219
  Transmission Date: 20180321
  Serious: Yes (Life-Threatening, Hospitalization)
  Sender: FDA-Public Use
  Company Number: HR-CIPLA LTD.-2017HR24432

PATIENT

DRUGS (3)
  1. BUDESONIDE. [Suspect]
     Active Substance: BUDESONIDE
     Indication: RHINITIS ALLERGIC
     Dosage: 64 ?G, UNK
     Route: 045
     Dates: start: 20170826, end: 20170828
  2. AERIUS [Concomitant]
     Active Substance: DESLORATADINE
     Indication: RHINITIS ALLERGIC
     Dosage: 5 MG, UNK
     Route: 048
     Dates: start: 20170826
  3. OPERIL [Suspect]
     Active Substance: OXYMETAZOLINE HYDROCHLORIDE
     Indication: NASAL CONGESTION
     Dosage: 0.3 ML, UNK
     Route: 045
     Dates: end: 20170828

REACTIONS (2)
  - Epistaxis [Recovered/Resolved]
  - Nasal discomfort [Recovered/Resolved]

NARRATIVE: CASE EVENT DATE: 20170828
